FAERS Safety Report 17917293 (Version 1)
Quarter: 2020Q2

REPORT INFORMATION
  Report Type: Spontaneous
  Country: MY (occurrence: MY)
  Receive Date: 20200619
  Receipt Date: 20200619
  Transmission Date: 20200714
  Serious: Yes (Hospitalization, Other)
  Sender: FDA-Public Use
  Company Number: MY-MICRO LABS LIMITED-ML2020-01803

PATIENT
  Age: 26 Year
  Sex: Female

DRUGS (4)
  1. VERAPAMIL HYDROCHLORIDE. [Suspect]
     Active Substance: VERAPAMIL HYDROCHLORIDE
     Dosage: 7.5 MG
     Route: 042
  2. ADENOSINE. [Suspect]
     Active Substance: ADENOSINE
     Indication: SUPRAVENTRICULAR TACHYCARDIA
     Dosage: 18 MG
     Route: 042
  3. VERAPAMIL HYDROCHLORIDE. [Suspect]
     Active Substance: VERAPAMIL HYDROCHLORIDE
     Indication: SUPRAVENTRICULAR TACHYCARDIA
     Dosage: 7.5 MG
     Route: 042
  4. ADENOSINE. [Suspect]
     Active Substance: ADENOSINE
     Dosage: 30 MILLIGRAM
     Route: 042

REACTIONS (1)
  - Drug ineffective [Recovered/Resolved]
